FAERS Safety Report 22657896 (Version 4)
Quarter: 2023Q4

REPORT INFORMATION
  Report Type: Report from Study
  Country: US (occurrence: US)
  Receive Date: 20230630
  Receipt Date: 20231215
  Transmission Date: 20240110
  Serious: Yes (Other)
  Sender: FDA-Public Use
  Company Number: US-002147023-NVSC2023US146745

PATIENT
  Sex: Female

DRUGS (7)
  1. COSENTYX [Suspect]
     Active Substance: SECUKINUMAB
     Indication: Psoriatic arthropathy
     Dosage: UNK
     Route: 065
  2. COSENTYX [Suspect]
     Active Substance: SECUKINUMAB
     Dosage: 150 MG, QMO (ONCE A MONTH
     Route: 058
  3. METHOTREXATE [Suspect]
     Active Substance: METHOTREXATE
     Indication: Psoriatic arthropathy
     Dosage: UNK
     Route: 065
  4. AZATHIOPRINE [Suspect]
     Active Substance: AZATHIOPRINE
     Indication: Psoriatic arthropathy
     Dosage: UNK
     Route: 065
  5. ADALIMUMAB [Suspect]
     Active Substance: ADALIMUMAB\ISOPROPYL ALCOHOL
     Indication: Rheumatoid arthritis
     Dosage: UNK
     Route: 065
  6. ETANERCEPT [Suspect]
     Active Substance: ETANERCEPT
     Indication: Rheumatoid arthritis
     Dosage: UNK
     Route: 065
  7. PREDNISONE [Suspect]
     Active Substance: PREDNISONE
     Indication: Psoriatic arthropathy
     Dosage: UNK
     Route: 065

REACTIONS (36)
  - Rheumatoid arthritis [Unknown]
  - Thrombosis [Unknown]
  - Hepatitis viral [Unknown]
  - Immunodeficiency [Unknown]
  - Arthralgia [Unknown]
  - Pain in extremity [Unknown]
  - Joint stiffness [Unknown]
  - Arthritis [Unknown]
  - Gait disturbance [Unknown]
  - Insomnia [Unknown]
  - Weight decreased [Unknown]
  - Pyrexia [Unknown]
  - Chills [Unknown]
  - Hyperhidrosis [Unknown]
  - Foreign body sensation in eyes [Unknown]
  - Dry mouth [Unknown]
  - Dyspepsia [Unknown]
  - Tinnitus [Unknown]
  - Palpitations [Unknown]
  - Thirst [Unknown]
  - Temperature intolerance [Unknown]
  - Hot flush [Unknown]
  - Balance disorder [Unknown]
  - Dizziness [Unknown]
  - Terminal insomnia [Unknown]
  - Hypoaesthesia [Unknown]
  - Rheumatoid factor positive [Unknown]
  - Rash [Unknown]
  - Transaminases increased [Unknown]
  - Fatigue [Unknown]
  - Spondyloarthropathy [Unknown]
  - Urine analysis abnormal [Unknown]
  - Psoriasis [Unknown]
  - Product use in unapproved indication [Unknown]
  - Incorrect dose administered [Unknown]
  - Therapeutic product effect incomplete [Unknown]

NARRATIVE: CASE EVENT DATE: 20150101
